FAERS Safety Report 11272024 (Version 1)
Quarter: 2015Q3

REPORT INFORMATION
  Report Type: Spontaneous
  Country: US (occurrence: None)
  Receive Date: 20150713
  Receipt Date: 20150713
  Transmission Date: 20151125
  Serious: No
  Sender: FDA-Public Use
  Company Number: 2013-00153

PATIENT
  Age: 83 Year
  Sex: Male
  Weight: 81.65 kg

DRUGS (2)
  1. ZICAM COLD REMEDY RAPIDMELTS [Suspect]
     Active Substance: ZINC ACETATE ANHYDROUS\ZINC GLUCONATE
     Indication: NASOPHARYNGITIS
     Dosage: 1 RAPIDMELT EVERY 4 HOURS
     Dates: start: 20131125, end: 20131201
  2. EQUATE TUSSIN CF [Suspect]
     Active Substance: DEXTROMETHORPHAN HYDROBROMIDE\GUAIFENESIN\PHENYLEPHRINE HYDROCHLORIDE
     Indication: NASOPHARYNGITIS
     Dates: start: 20131125, end: 20131201

REACTIONS (1)
  - Ageusia [None]

NARRATIVE: CASE EVENT DATE: 20131202
